FAERS Safety Report 4321828-2 (Version None)
Quarter: 2004Q1

REPORT INFORMATION
  Report Type: 
  Country: None (occurrence: None)
  Receive Date: 20040322
  Receipt Date: 20040322
  Transmission Date: 20041129
  Serious: Yes (Hospitalization)
  Sender: FDA-Public Use
  Company Number: None

PATIENT
  Age: 47 Year
  Sex: Male
  Weight: 79.2661 kg

DRUGS (3)
  1. CISPLATIN [Suspect]
     Indication: TONSIL CANCER
     Dosage: 188.0 MG 2/9/04 IV, 188.0 MG 3/17/04 IV
     Route: 042
     Dates: start: 20040209
  2. CISPLATIN [Suspect]
     Indication: TONSIL CANCER
     Dosage: 188.0 MG 2/9/04 IV, 188.0 MG 3/17/04 IV
     Route: 042
     Dates: start: 20040317
  3. XRT [Concomitant]

REACTIONS (9)
  - DEHYDRATION [None]
  - DRUG TOXICITY [None]
  - DYSPHAGIA [None]
  - MUCOSAL INFLAMMATION [None]
  - NAUSEA [None]
  - ORAL PAIN [None]
  - PAIN [None]
  - SALIVARY HYPERSECRETION [None]
  - VOMITING [None]
